FAERS Safety Report 9180503 (Version 2)
Quarter: 2013Q1

REPORT INFORMATION
  Report Type: Spontaneous
  Country: US (occurrence: None)
  Receive Date: 20130320
  Receipt Date: 20130326
  Transmission Date: 20140127
  Serious: Yes (Hospitalization)
  Sender: FDA-Public Use
  Company Number: 2013-0418

PATIENT
  Age: 62 Year
  Sex: Male

DRUGS (1)
  1. KYPROLIS (CARFILZOMIB) (INJECTION FOR INFUSION) (CARFILZOMIB) [Suspect]
     Indication: PLASMA CELL MYELOMA
     Route: 042
     Dates: start: 20121106, end: 20130206

REACTIONS (5)
  - Fall [None]
  - Contusion [None]
  - Bacterial infection [None]
  - Necrotising fasciitis [None]
  - Weight decreased [None]
